FAERS Safety Report 16885071 (Version 3)
Quarter: 2019Q4

REPORT INFORMATION
  Report Type: Spontaneous
  Country: US (occurrence: US)
  Receive Date: 20191004
  Receipt Date: 20191127
  Transmission Date: 20200122
  Serious: No
  Sender: FDA-Public Use
  Company Number: US-PFIZER INC-2019429321

PATIENT
  Age: 27 Year
  Sex: Female

DRUGS (3)
  1. PREGABALIN. [Suspect]
     Active Substance: PREGABALIN
     Indication: FIBROMYALGIA
     Dosage: 150 MG, 3X/DAY
     Route: 048
  2. PREGABALIN. [Suspect]
     Active Substance: PREGABALIN
     Indication: CENTRAL PAIN SYNDROME
  3. PREGABALIN. [Suspect]
     Active Substance: PREGABALIN
     Indication: PAIN

REACTIONS (3)
  - Loss of personal independence in daily activities [Not Recovered/Not Resolved]
  - Drug ineffective [Not Recovered/Not Resolved]
  - Fatigue [Not Recovered/Not Resolved]
